FAERS Safety Report 8591228-8 (Version None)
Quarter: 2012Q3

REPORT INFORMATION
  Report Type: 
  Country: None (occurrence: None)
  Receive Date: 20120813
  Receipt Date: 20120809
  Transmission Date: 20120928
  Serious: Yes (Other)
  Sender: FDA-Public Use
  Company Number: US-TEVA-347316USA

PATIENT
  Age: 56 Year
  Sex: Female

DRUGS (4)
  1. FENPROPOREX [Concomitant]
  2. VENTOLIN HFA [Concomitant]
     Route: 055
  3. PROAIR HFA [Suspect]
     Dates: start: 20120702, end: 20120702
  4. FLONASE [Concomitant]
     Route: 045

REACTIONS (9)
  - CEREBROVASCULAR ACCIDENT [None]
  - CONFUSIONAL STATE [None]
  - DYSARTHRIA [None]
  - SPEECH DISORDER [None]
  - WRONG DRUG ADMINISTERED [None]
  - CHEST DISCOMFORT [None]
  - EYE DISORDER [None]
  - MUSCULAR WEAKNESS [None]
  - PARAESTHESIA [None]
